FAERS Safety Report 13077101 (Version 2)
Quarter: 2017Q1

REPORT INFORMATION
  Report Type: Spontaneous
  Country: JP (occurrence: JP)
  Receive Date: 20161230
  Receipt Date: 20170123
  Transmission Date: 20170428
  Serious: Yes (Death)
  Sender: FDA-Public Use
  Company Number: JP-ASTRAZENECA-2016SF37316

PATIENT
  Age: 1 Year
  Sex: Female

DRUGS (5)
  1. NICARDIPINE HYDROCHLORIDE. [Concomitant]
     Active Substance: NICARDIPINE HYDROCHLORIDE
     Indication: BLOOD PRESSURE INCREASED
     Route: 041
  2. MEROPEN [Suspect]
     Active Substance: MEROPENEM
     Indication: BACTERAEMIA
     Route: 041
  3. MEROPEN [Suspect]
     Active Substance: MEROPENEM
     Indication: PSEUDOMONAS INFECTION
     Route: 041
  4. VANCOMYCIN [Concomitant]
     Active Substance: VANCOMYCIN
     Indication: PSEUDOMONAS INFECTION
     Route: 065
  5. VANCOMYCIN [Concomitant]
     Active Substance: VANCOMYCIN
     Indication: BACTERAEMIA
     Route: 065

REACTIONS (5)
  - Disseminated intravascular coagulation [Fatal]
  - Sepsis [Fatal]
  - Pneumonia [Fatal]
  - Gastroenteritis clostridial [Fatal]
  - Portal venous gas [Fatal]
